FAERS Safety Report 23077803 (Version 1)
Quarter: 2023Q4

REPORT INFORMATION
  Report Type: Report from Study
  Country: US (occurrence: US)
  Receive Date: 20231018
  Receipt Date: 20231018
  Transmission Date: 20240110
  Serious: Yes (Hospitalization)
  Sender: FDA-Public Use
  Company Number: US-GENMAB-2022-00165

PATIENT
  Age: 74 Year
  Sex: Female
  Weight: 65 kg

DRUGS (40)
  1. EPCORITAMAB [Suspect]
     Active Substance: EPCORITAMAB
     Indication: Follicular lymphoma stage IV
     Dosage: C1D1
     Route: 058
     Dates: start: 20210701, end: 20210701
  2. EPCORITAMAB [Suspect]
     Active Substance: EPCORITAMAB
     Dosage: C1D8
     Route: 058
     Dates: start: 20210715, end: 20210715
  3. EPCORITAMAB [Suspect]
     Active Substance: EPCORITAMAB
     Dosage: C1D15-C3D22
     Route: 058
     Dates: start: 20210721, end: 20210915
  4. EPCORITAMAB [Suspect]
     Active Substance: EPCORITAMAB
     Dosage: C4D1-C5D1
     Route: 058
     Dates: start: 20210929, end: 20211020
  5. EPCORITAMAB [Suspect]
     Active Substance: EPCORITAMAB
     Dosage: RP1D1
     Route: 058
     Dates: start: 20211229, end: 20211229
  6. EPCORITAMAB [Suspect]
     Active Substance: EPCORITAMAB
     Dosage: RP1D8
     Route: 058
     Dates: start: 20220106, end: 20220106
  7. EPCORITAMAB [Suspect]
     Active Substance: EPCORITAMAB
     Dosage: RPD15-RPD22
     Route: 058
     Dates: start: 20220112, end: 20220126
  8. EPCORITAMAB [Suspect]
     Active Substance: EPCORITAMAB
     Dosage: C6D1-C6D15
     Route: 058
     Dates: start: 20220202, end: 20220216
  9. RITUXIMAB [Suspect]
     Active Substance: RITUXIMAB
     Indication: Follicular lymphoma stage IV
     Dosage: C1D1-C1D2
     Route: 042
     Dates: start: 20210701, end: 20210702
  10. RITUXIMAB [Suspect]
     Active Substance: RITUXIMAB
     Dosage: C1D22
     Route: 042
     Dates: start: 20210721, end: 20210721
  11. RITUXIMAB [Suspect]
     Active Substance: RITUXIMAB
     Dosage: C2D1 - C5D1
     Route: 042
     Dates: start: 20210728, end: 20211020
  12. LENALIDOMIDE [Suspect]
     Active Substance: LENALIDOMIDE
     Indication: Follicular lymphoma stage IV
     Dosage: C1D1-C1D11
     Route: 048
     Dates: start: 20210701, end: 20210711
  13. LENALIDOMIDE [Suspect]
     Active Substance: LENALIDOMIDE
     Dosage: C1D15-C1D17
     Route: 048
     Dates: start: 20210715, end: 20210717
  14. LENALIDOMIDE [Suspect]
     Active Substance: LENALIDOMIDE
     Dosage: C1D19-CD21
     Route: 048
     Dates: start: 20210719, end: 20210721
  15. LENALIDOMIDE [Suspect]
     Active Substance: LENALIDOMIDE
     Dosage: C2D1-C2D21
     Route: 048
     Dates: start: 20210729, end: 20210818
  16. LENALIDOMIDE [Suspect]
     Active Substance: LENALIDOMIDE
     Dosage: C3D1-C3D21
     Route: 048
     Dates: start: 20210825, end: 20210914
  17. LENALIDOMIDE [Suspect]
     Active Substance: LENALIDOMIDE
     Dosage: C4D1
     Route: 048
     Dates: start: 20210922, end: 20210929
  18. LENALIDOMIDE [Suspect]
     Active Substance: LENALIDOMIDE
     Dosage: C4D3-C4D10
     Route: 048
     Dates: start: 20211003, end: 20211012
  19. LENALIDOMIDE [Suspect]
     Active Substance: LENALIDOMIDE
     Dosage: C5D1-C5D7
     Route: 048
     Dates: start: 20211020, end: 20211026
  20. LENALIDOMIDE [Suspect]
     Active Substance: LENALIDOMIDE
     Dosage: RPD1-RPD20
     Route: 048
     Dates: start: 20211230, end: 20220118
  21. LENALIDOMIDE [Suspect]
     Active Substance: LENALIDOMIDE
     Dosage: C6D1-C6D6
     Route: 048
     Dates: start: 20220202, end: 20220207
  22. CETIRIZINE [Concomitant]
     Active Substance: CETIRIZINE HYDROCHLORIDE
     Indication: Premedication
     Dosage: 10 MILLIGRAM, SINGLE
     Route: 048
     Dates: start: 20220216, end: 20220216
  23. PREDNISONE [Concomitant]
     Active Substance: PREDNISONE
     Indication: Prophylaxis
     Dosage: 100 MILLIGRAM, QD
     Route: 048
     Dates: start: 20220216, end: 20220218
  24. ACETAMINOPHEN [Concomitant]
     Active Substance: ACETAMINOPHEN
     Indication: Prophylaxis
     Dosage: 650 MILLIGRAM, QID PRN
     Route: 048
     Dates: start: 20210622
  25. ACYCLOVIR [Concomitant]
     Active Substance: ACYCLOVIR
     Indication: Prophylaxis
     Dosage: 400 MILLIGRAM, BID
     Route: 048
     Dates: start: 20210602
  26. CALCIUM;MINERALS NOS;VITAMIN D NOS [Concomitant]
     Indication: Prophylaxis
     Dosage: 1 TABLET, QD
     Route: 048
     Dates: start: 20180319
  27. CARVEDILOL [Concomitant]
     Active Substance: CARVEDILOL
     Indication: Pneumonia
     Dosage: 25 MILLIGRAM, BID
     Route: 048
     Dates: start: 20211116, end: 20220804
  28. DULOXETINE [Concomitant]
     Active Substance: DULOXETINE
     Dosage: 30 MILLIGRAM, QD
     Route: 048
     Dates: start: 20210518
  29. FERROUS SULFATE [Concomitant]
     Active Substance: FERROUS SULFATE
     Indication: Prophylaxis
     Dosage: 325 MILLIGRAM, QD
     Route: 048
     Dates: start: 20210510
  30. GLIPIZIDE [Concomitant]
     Active Substance: GLIPIZIDE
     Dosage: 10 MILLIGRAM, QD
     Route: 048
     Dates: start: 20210128
  31. LISINOPRIL [Concomitant]
     Active Substance: LISINOPRIL
     Dosage: 10 MILLIGRAM, QD
     Route: 048
     Dates: start: 20210924
  32. LOPERAMIDE [Concomitant]
     Active Substance: LOPERAMIDE
     Dosage: 2 MILLIGRAM, QID PRN
     Route: 048
     Dates: start: 20211003, end: 20221203
  33. LORAZEPAM [Concomitant]
     Active Substance: LORAZEPAM
     Indication: Prophylaxis
     Dosage: 0.5 MILLIGRAM, QID PRN
     Route: 048
     Dates: start: 20210622
  34. PEGFILGRASTIM [Concomitant]
     Active Substance: PEGFILGRASTIM
     Dosage: 6 MILLIGRAM, SINGLE
     Route: 058
     Dates: start: 20220126, end: 20220126
  35. METFORMIN [Concomitant]
     Active Substance: METFORMIN HYDROCHLORIDE
     Dosage: 1000 MILLIGRAM, BID
     Route: 048
     Dates: start: 20190520
  36. OMEPRAZOLE [Concomitant]
     Active Substance: OMEPRAZOLE
     Dosage: 20 MILLIGRAM, BID
     Route: 048
     Dates: start: 20210522, end: 20220221
  37. OMEPRAZOLE [Concomitant]
     Active Substance: OMEPRAZOLE
     Dosage: 20 MILLIGRAM, BID
     Route: 048
     Dates: start: 20220221
  38. CYANOCOBALAMIN [Concomitant]
     Active Substance: CYANOCOBALAMIN
     Indication: Prophylaxis
     Dosage: 1000 MICROGRAM, QD
     Route: 048
     Dates: start: 20210105, end: 20220617
  39. PREGABALIN [Concomitant]
     Active Substance: PREGABALIN
     Dosage: 150 MILLIGRAM, BID
     Route: 048
     Dates: start: 20170703, end: 20220613
  40. LEVOFLOXACIN [Concomitant]
     Active Substance: LEVOFLOXACIN
     Indication: Prophylaxis
     Dosage: 500 MILLIGRAM, QD
     Route: 048
     Dates: start: 20220228, end: 20220306

REACTIONS (1)
  - Klebsiella sepsis [Recovered/Resolved]

NARRATIVE: CASE EVENT DATE: 20220221
